FAERS Safety Report 9813502 (Version 1)
Quarter: 2014Q1

REPORT INFORMATION
  Report Type: Spontaneous
  Country: US (occurrence: US)
  Receive Date: 20140113
  Receipt Date: 20140113
  Transmission Date: 20141002
  Serious: No
  Sender: FDA-Public Use
  Company Number: US-TEVA-455642USA

PATIENT
  Age: 34 Year
  Sex: Female
  Weight: 54.48 kg

DRUGS (4)
  1. NUVIGIL [Suspect]
     Indication: ATTENTION DEFICIT/HYPERACTIVITY DISORDER
     Dates: start: 201311, end: 201311
  2. CARBAMAZEPINE [Concomitant]
     Indication: BIPOLAR DISORDER
  3. HYDROXYZINE [Concomitant]
     Indication: ANXIETY
  4. TRAZADONE [Concomitant]
     Indication: INSOMNIA

REACTIONS (5)
  - Drug ineffective for unapproved indication [Not Recovered/Not Resolved]
  - Somnolence [Not Recovered/Not Resolved]
  - Fatigue [Not Recovered/Not Resolved]
  - Disturbance in attention [Not Recovered/Not Resolved]
  - Off label use [Unknown]
